FAERS Safety Report 9501961 (Version 1)
Quarter: 2013Q3

REPORT INFORMATION
  Report Type: Spontaneous
  Country: US (occurrence: US)
  Receive Date: 20130905
  Receipt Date: 20130905
  Transmission Date: 20140515
  Serious: Yes (Other)
  Sender: FDA-Public Use
  Company Number: US-PFIZER INC-2013247434

PATIENT
  Age: 47 Year
  Sex: Female
  Weight: 72.56 kg

DRUGS (2)
  1. LEVOXYL [Suspect]
     Indication: THYROID DISORDER
     Dosage: 112 UG, 1X/DAY
     Route: 048
     Dates: end: 201303
  2. LEVOXYL [Suspect]
     Indication: GOITRE

REACTIONS (1)
  - Thyroid disorder [Unknown]
